FAERS Safety Report 9239534 (Version 3)
Quarter: 2013Q4

REPORT INFORMATION
  Report Type: Spontaneous
  Country: US (occurrence: US)
  Receive Date: 20130418
  Receipt Date: 20131008
  Transmission Date: 20140711
  Serious: No
  Sender: FDA-Public Use
  Company Number: US-PFIZER INC-2013118995

PATIENT
  Age: 37 Year
  Sex: Male
  Weight: 74.38 kg

DRUGS (5)
  1. SUTENT [Suspect]
     Indication: PANCREATIC CARCINOMA
     Dosage: 50 MG, CYCLIC, (50 MG DAILY, 4 WEEKS ON, 2 WEEKS OFF)
     Dates: start: 20130328
  2. PROTONIX [Concomitant]
     Indication: ULCER
     Dosage: 120 MG, 1X/DAY
  3. PROBIOTICS [Concomitant]
     Dosage: UNK
  4. CREON [Concomitant]
     Indication: PANCREATIC ENZYME ABNORMALITY
     Dosage: 12000 IU, UNK
  5. LORTAB [Concomitant]
     Dosage: UNK

REACTIONS (4)
  - Fatigue [Unknown]
  - Hair colour changes [Not Recovered/Not Resolved]
  - Dysgeusia [Recovered/Resolved]
  - Dry skin [Unknown]
